FAERS Safety Report 21741943 (Version 1)
Quarter: 2022Q4

REPORT INFORMATION
  Report Type: Spontaneous
  Country: US (occurrence: None)
  Receive Date: 20221215
  Receipt Date: 20221215
  Transmission Date: 20230112
  Serious: Yes (Hospitalization)
  Sender: FDA-Public Use
  Company Number: None

PATIENT
  Sex: Male

DRUGS (8)
  1. CYCLOSPORINE [Suspect]
     Active Substance: CYCLOSPORINE
     Indication: Aplastic anaemia
     Dosage: TAKE 2 CAPSULES BY MOUTH EVERY MORNING AND 1 CAPSULE EVERY EVENING?
     Route: 048
     Dates: start: 20210505
  2. CYCLOSPORINE [Suspect]
     Active Substance: CYCLOSPORINE
     Dosage: OTHER FREQUENCY : EVERY EVENING;?
     Route: 048
  3. AMICAR [Concomitant]
     Active Substance: AMINOCAPROIC ACID
  4. FLUTICASONE SPR [Concomitant]
  5. LEVOTHYROXINE [Concomitant]
     Active Substance: LEVOTHYROXINE
  6. ELVOTHYROXIN [Concomitant]
  7. LEXAPRO [Concomitant]
     Active Substance: ESCITALOPRAM OXALATE
  8. PROMACTA [Concomitant]
     Active Substance: ELTROMBOPAG OLAMINE

REACTIONS (1)
  - Unevaluable event [None]
